FAERS Safety Report 19116591 (Version 2)
Quarter: 2021Q2

REPORT INFORMATION
  Report Type: Other
  Country: JP (occurrence: JP)
  Receive Date: 20210409
  Receipt Date: 20210618
  Transmission Date: 20210717
  Serious: No
  Sender: FDA-Public Use
  Company Number: JP-ROCHE-2801054

PATIENT

DRUGS (3)
  1. POVIDONE?IODINE. [Concomitant]
     Active Substance: POVIDONE-IODINE
  2. XYLOCAINE [Concomitant]
     Active Substance: LIDOCAINE HYDROCHLORIDE
     Indication: ANAESTHESIA
     Route: 047
  3. BEVACIZUMAB. [Suspect]
     Active Substance: BEVACIZUMAB
     Indication: RETINOPATHY OF PREMATURITY
     Dosage: TOTAL VOLUME, 0.025 ML
     Route: 050

REACTIONS (4)
  - Off label use [Unknown]
  - Developmental delay [Unknown]
  - Strabismus [Unknown]
  - Myopia [Unknown]
